FAERS Safety Report 9536069 (Version 2)
Quarter: 2014Q3

REPORT INFORMATION
  Report Type: Spontaneous
  Country: US (occurrence: US)
  Receive Date: 20130919
  Receipt Date: 20140702
  Transmission Date: 20150326
  Serious: No
  Sender: FDA-Public Use
  Company Number: US-BAYER-2013-113026

PATIENT
  Sex: Female
  Weight: 58.96 kg

DRUGS (2)
  1. BETASERON [Suspect]
     Active Substance: INTERFERON BETA-1B
     Indication: MULTIPLE SCLEROSIS
     Dosage: 0.25 MG (1 ML), QOD
     Route: 058
     Dates: start: 1994
  2. ATIVAN [Concomitant]
     Active Substance: LORAZEPAM

REACTIONS (2)
  - Injection site bruising [Not Recovered/Not Resolved]
  - Injection site scar [Unknown]
